FAERS Safety Report 8992259 (Version 1)
Quarter: 2012Q4

REPORT INFORMATION
  Report Type: 
  Country: FI (occurrence: FI)
  Receive Date: 20121231
  Receipt Date: 20121231
  Transmission Date: 20130627
  Serious: Yes (Hospitalization)
  Sender: FDA-Public Use
  Company Number: FI-ELI_LILLY_AND_COMPANY-FI201212006687

PATIENT
  Sex: Female

DRUGS (8)
  1. FORSTEO [Suspect]
     Indication: OSTEOPOROSIS
     Dosage: 20 ug, qd
     Route: 058
     Dates: start: 20121127
  2. COZAAR COMP [Concomitant]
     Indication: HYPERTENSION
     Dosage: UNK, unknown
  3. LIPCUT [Concomitant]
     Indication: BLOOD CHOLESTEROL
     Dosage: UNK, unknown
  4. OXIKLORIN [Concomitant]
     Dosage: UNK, unknown
  5. REMICADE [Concomitant]
     Dosage: UNK, unknown
     Route: 042
  6. TREXAN [Concomitant]
     Dosage: UNK, unknown
  7. KALCIPOS-D [Concomitant]
     Dosage: UNK, unknown
  8. DEVISOL [Concomitant]
     Dosage: UNK, unknown

REACTIONS (1)
  - Rectal haemorrhage [Unknown]
